FAERS Safety Report 7277754-2 (Version None)
Quarter: 2011Q1

REPORT INFORMATION
  Report Type: 
  Country: None (occurrence: None)
  Receive Date: 20110207
  Receipt Date: 20100122
  Transmission Date: 20110831
  Serious: No
  Sender: FDA-Public Use
  Company Number: A0838982A

PATIENT
  Age: 79 Year
  Sex: Female

DRUGS (3)
  1. OLUX E [Suspect]
     Indication: RASH
     Dosage: 1APP TWICE PER DAY
     Route: 061
     Dates: start: 20100109
  2. SYNTHROID [Concomitant]
  3. MULTI-VITAMIN [Concomitant]

REACTIONS (8)
  - PRURITUS [None]
  - DRUG INEFFECTIVE [None]
  - APPLICATION SITE PAIN [None]
  - SCRATCH [None]
  - PAIN [None]
  - RASH [None]
  - SKIN HAEMORRHAGE [None]
  - POOR QUALITY SLEEP [None]
